FAERS Safety Report 18509306 (Version 1)
Quarter: 2020Q4

REPORT INFORMATION
  Report Type: Report from Study
  Country: CA (occurrence: CA)
  Receive Date: 20201117
  Receipt Date: 20201117
  Transmission Date: 20210114
  Serious: Yes (Death)
  Sender: FDA-Public Use
  Company Number: CA-REGENERON PHARMACEUTICALS, INC.-2020-88797

PATIENT

DRUGS (1)
  1. EYLEA [Suspect]
     Active Substance: AFLIBERCEPT
     Indication: DIABETIC RETINAL OEDEMA
     Dosage: UNK; TOTAL NUMBER OF DOSES AND EYE UNK; LAST DOSE PRIOR TO EVENT UNK
     Route: 031
     Dates: start: 20181203

REACTIONS (1)
  - Death [Fatal]
